FAERS Safety Report 10414893 (Version 1)
Quarter: 2014Q2

REPORT INFORMATION
  Report Type: Spontaneous
  Country: US (occurrence: None)
  Receive Date: 20140604
  Receipt Date: 20140604
  Transmission Date: 20141212
  Serious: No
  Sender: FDA-Public Use
  Company Number: 163-POMAL-14033957

PATIENT
  Age: 75 Year
  Sex: Male
  Weight: 92.1 kg

DRUGS (11)
  1. POMALYST (POMALIDOMIDE) (4 MILILGRAM, CAPSULES) [Suspect]
     Indication: PLASMA CELL MYELOMA
     Dosage: 21 IN 28D
     Dates: start: 20130530
  2. AZITHROMYCIN (AZITHROMYCIN) [Concomitant]
  3. ACYCLOVIR (ACICLOVIR) [Concomitant]
  4. GABAPENTIN (GABAPENTIN) [Concomitant]
  5. ALLOPURINOL (ALLOPURINOL) [Concomitant]
  6. VITAMIN B FORTE (TRINEURIN) [Concomitant]
  7. DEXAMETHASONE (DEXAMETHASONE) [Concomitant]
  8. PRESERVISION [Concomitant]
  9. VITAMIN D (ERGOCLCIFEROL) [Concomitant]
  10. ASPIRIN (ACETYLSALICYLIC ACID) [Concomitant]
  11. LIPITOR (ATORVASTATIN) [Concomitant]

REACTIONS (1)
  - Nasopharyngitis [None]
